FAERS Safety Report 16381278 (Version 1)
Quarter: 2019Q2

REPORT INFORMATION
  Report Type: Spontaneous
  Country: US (occurrence: US)
  Receive Date: 20190603
  Receipt Date: 20190603
  Transmission Date: 20190711
  Serious: Yes (Life-Threatening, Hospitalization, Other)
  Sender: FDA-Public Use
  Company Number: US-AMGEN-USASP2019085638

PATIENT
  Age: 67 Year
  Sex: Male

DRUGS (1)
  1. CINACALCET HCL [Suspect]
     Active Substance: CINACALCET HYDROCHLORIDE
     Indication: HYPERPARATHYROIDISM TERTIARY
     Dosage: UNK
     Route: 065

REACTIONS (5)
  - Small intestinal obstruction [Unknown]
  - Pulmonary oedema [Unknown]
  - Haemodynamic instability [Unknown]
  - Off label use [Unknown]
  - Hypercalcaemia [Unknown]
